FAERS Safety Report 10569016 (Version 3)
Quarter: 2014Q4

REPORT INFORMATION
  Report Type: Spontaneous
  Country: US (occurrence: US)
  Receive Date: 20141106
  Receipt Date: 20141119
  Transmission Date: 20150529
  Serious: Yes (Death, Hospitalization)
  Sender: FDA-Public Use
  Company Number: US-JNJFOC-20141102779

PATIENT
  Age: 69 Year
  Sex: Male

DRUGS (6)
  1. IMBRUVICA [Suspect]
     Active Substance: IBRUTINIB
     Indication: CHROMOSOMAL DELETION
     Route: 048
     Dates: start: 20140801, end: 20140915
  2. ZYLOPRIM [Concomitant]
     Active Substance: ALLOPURINOL
  3. IMBRUVICA [Suspect]
     Active Substance: IBRUTINIB
     Indication: CHRONIC LYMPHOCYTIC LEUKAEMIA
     Route: 048
     Dates: start: 20140801, end: 20140915
  4. BUMETANIDE. [Concomitant]
     Active Substance: BUMETANIDE
  5. KLOR-CON [Concomitant]
     Active Substance: POTASSIUM CHLORIDE
  6. CALAN (VERAPAMIL HCL) [Concomitant]

REACTIONS (3)
  - Skin ulcer [Recovering/Resolving]
  - Disease progression [Fatal]
  - Sepsis [Recovering/Resolving]

NARRATIVE: CASE EVENT DATE: 20140915
